FAERS Safety Report 4439807-3 (Version None)
Quarter: 2004Q3

REPORT INFORMATION
  Report Type: 
  Country: None (occurrence: None)
  Receive Date: 20040902
  Receipt Date: 20040823
  Transmission Date: 20050211
  Serious: Yes (Death, Hospitalization)
  Sender: FDA-Public Use
  Company Number: FR-JNJFOC-20040807777

PATIENT
  Sex: Male
  Weight: 62 kg

DRUGS (5)
  1. REOPRO [Suspect]
     Indication: ANGIOPLASTY
     Route: 042
  2. METALYSE [Suspect]
     Indication: ANGIOPLASTY
  3. HEPARIN [Concomitant]
     Indication: ANGIOPLASTY
  4. PLAVIX [Concomitant]
     Indication: ANGIOPLASTY
     Dosage: 4 TABS LOADING DOSE
     Route: 049
  5. ASPIRIN [Concomitant]
     Indication: ANGIOPLASTY

REACTIONS (2)
  - CEREBRAL HAEMORRHAGE [None]
  - DRUG INTERACTION [None]
